FAERS Safety Report 9231087 (Version 1)
Quarter: 2013Q2

REPORT INFORMATION
  Report Type: Spontaneous
  Country: US (occurrence: US)
  Receive Date: 20130415
  Receipt Date: 20130415
  Transmission Date: 20140414
  Serious: Yes (Other)
  Sender: FDA-Public Use
  Company Number: US-PFIZER INC-2013113903

PATIENT
  Age: 61 Year
  Sex: Female
  Weight: 81.63 kg

DRUGS (4)
  1. XANAX [Suspect]
     Indication: ANXIETY
     Dosage: 2 MG, UNK
     Route: 048
     Dates: end: 2012
  2. XANAX [Suspect]
     Indication: PANIC ATTACK
  3. PROPRANOLOL [Concomitant]
     Dosage: UNK
  4. ESTRACE [Concomitant]
     Dosage: UNK

REACTIONS (8)
  - Cutaneous lupus erythematosus [Unknown]
  - Apparent death [Unknown]
  - Blood pressure increased [Unknown]
  - Feeling abnormal [Unknown]
  - Pulmonary hypertension [Unknown]
  - Myocardial infarction [Unknown]
  - Emotional disorder [Unknown]
  - Drug ineffective [Unknown]
